FAERS Safety Report 12646415 (Version 3)
Quarter: 2016Q3

REPORT INFORMATION
  Report Type: Spontaneous
  Country: US (occurrence: US)
  Receive Date: 20160812
  Receipt Date: 20160927
  Transmission Date: 20161109
  Serious: No
  Sender: FDA-Public Use
  Company Number: US-ASTRAZENECA-2016SE83403

PATIENT
  Age: 732 Month
  Sex: Female
  Weight: 112.5 kg

DRUGS (1)
  1. BYDUREON [Suspect]
     Active Substance: EXENATIDE
     Indication: TYPE 2 DIABETES MELLITUS
     Route: 058
     Dates: start: 2016

REACTIONS (3)
  - Incorrect dose administered by device [Unknown]
  - Blood glucose decreased [Unknown]
  - Device malfunction [Unknown]

NARRATIVE: CASE EVENT DATE: 201605
